FAERS Safety Report 11776951 (Version 3)
Quarter: 2015Q4

REPORT INFORMATION
  Report Type: Report from Study
  Country: US (occurrence: US)
  Receive Date: 20151125
  Receipt Date: 20151225
  Transmission Date: 20160304
  Serious: No
  Sender: FDA-Public Use
  Company Number: PHEH2015US024513

PATIENT
  Age: 55 Year
  Sex: Male

DRUGS (4)
  1. EXTAVIA [Suspect]
     Active Substance: INTERFERON BETA-1B
     Dosage: WEEKS 5-6 (0.1875 MG) 0.75 ML, QOD
     Route: 058
  2. EXTAVIA [Suspect]
     Active Substance: INTERFERON BETA-1B
     Indication: MULTIPLE SCLEROSIS
     Dosage: WEEKS 1-2 (0.0625 MG) 0.25 ML, QOD
     Route: 058
     Dates: start: 20150922
  3. EXTAVIA [Suspect]
     Active Substance: INTERFERON BETA-1B
     Dosage: WEEKS 7+ (0.25 MG),1 ML, QOD
     Route: 058
  4. EXTAVIA [Suspect]
     Active Substance: INTERFERON BETA-1B
     Dosage: WEEKS 3-4 (0.125MG) 0.5 ML, QOD
     Route: 058

REACTIONS (10)
  - Back pain [Unknown]
  - Somnolence [Unknown]
  - Memory impairment [Unknown]
  - Joint crepitation [Unknown]
  - Injection site pain [Unknown]
  - Headache [Unknown]
  - Musculoskeletal discomfort [Unknown]
  - Paraesthesia [Unknown]
  - Musculoskeletal chest pain [Unknown]
  - Gait disturbance [Unknown]

NARRATIVE: CASE EVENT DATE: 20150922
